FAERS Safety Report 21899814 (Version 1)
Quarter: 2023Q1

REPORT INFORMATION
  Report Type: Spontaneous
  Country: US (occurrence: US)
  Receive Date: 20230123
  Receipt Date: 20230123
  Transmission Date: 20230418
  Serious: No
  Sender: FDA-Public Use
  Company Number: US-PFIZER INC-PV202300013939

PATIENT
  Age: 4 Decade
  Sex: Female

DRUGS (1)
  1. PAXLOVID [Suspect]
     Active Substance: NIRMATRELVIR\RITONAVIR
     Indication: COVID-19 treatment
     Dosage: 3 DF (150MG X 2 - 100 MG)

REACTIONS (5)
  - Condition aggravated [Unknown]
  - Pain [Unknown]
  - Chills [Unknown]
  - Nausea [Unknown]
  - Dizziness [Unknown]
